FAERS Safety Report 10544051 (Version 2)
Quarter: 2014Q4

REPORT INFORMATION
  Report Type: Spontaneous
  Country: US (occurrence: None)
  Receive Date: 20141010
  Receipt Date: 20141205
  Transmission Date: 20150529
  Serious: Yes (Other)
  Sender: FDA-Public Use
  Company Number: 163-POMAL-14072907

PATIENT
  Age: 69 Year
  Sex: Male

DRUGS (8)
  1. CLONAZEPAM (CLONAZEPAM) [Concomitant]
  2. PEPCID AC (FAMOTIDINE) [Concomitant]
  3. DULCOLAX (BISACODYL) [Concomitant]
     Active Substance: BISACODYL
  4. POMALYST [Suspect]
     Active Substance: POMALIDOMIDE
     Indication: PLASMA CELL MYELOMA
     Dosage: 2 MG, 21 IN 21 D, PO
     Route: 048
     Dates: start: 20140619
  5. DEXAMETHASONE (DEXAMETHASONE) [Concomitant]
     Active Substance: DEXAMETHASONE
  6. MIDODRINE HCL (MIDODRONE HYDROCHLORIDE) [Concomitant]
  7. VALTREX [Concomitant]
     Active Substance: VALACYCLOVIR HYDROCHLORIDE
  8. MIRALAX (MACROGOL) [Concomitant]

REACTIONS (4)
  - Chronic kidney disease [None]
  - Hypotension [None]
  - Constipation [None]
  - Laboratory test abnormal [None]
